FAERS Safety Report 4452275-0 (Version None)
Quarter: 2004Q3

REPORT INFORMATION
  Report Type: 
  Country: None (occurrence: None)
  Receive Date: 20040917
  Receipt Date: 20040908
  Transmission Date: 20050211
  Serious: Yes (Other)
  Sender: FDA-Public Use
  Company Number: PHNU2004DE03170

PATIENT
  Sex: Male

DRUGS (1)
  1. ELIDEL [Suspect]
     Dosage: 1 DF, BID
     Route: 061

REACTIONS (3)
  - ECZEMA [None]
  - ECZEMA IMPETIGINOUS [None]
  - STAPHYLOCOCCAL INFECTION [None]
